FAERS Safety Report 5423677-0 (Version None)
Quarter: 2007Q3

REPORT INFORMATION
  Report Type: 
  Country: None (occurrence: None)
  Receive Date: 20070823
  Receipt Date: 20070817
  Transmission Date: 20080115
  Serious: Yes (Death, Life-Threatening)
  Sender: FDA-Public Use
  Company Number: B0482129A

PATIENT
  Age: 74 Year
  Sex: Male

DRUGS (9)
  1. ZOVIRAX [Suspect]
     Indication: HERPES ZOSTER
     Dosage: 250MG VARIABLE DOSE
     Route: 042
     Dates: start: 20070730, end: 20070801
  2. FOIPAN [Concomitant]
     Dosage: 30MG PER DAY
     Route: 048
  3. SELBEX [Concomitant]
     Dosage: 150MG PER DAY
     Route: 048
  4. FAMOTIDINE [Concomitant]
     Dosage: 40MG PER DAY
     Route: 048
  5. ZOLPIDEM [Concomitant]
     Dosage: 5MG PER DAY
     Route: 048
  6. CLEBOPRIDE MALATE [Concomitant]
     Dosage: 1MG PER DAY
     Route: 048
  7. TRYPTANOL [Concomitant]
     Indication: HERPES ZOSTER
     Route: 048
     Dates: start: 20070730
  8. METHYCOBAL [Concomitant]
     Indication: HERPES ZOSTER
     Route: 048
     Dates: start: 20070730
  9. VASOPRESSORS [Concomitant]

REACTIONS (11)
  - CARDIO-RESPIRATORY ARREST [None]
  - DIZZINESS [None]
  - DYSSTASIA [None]
  - FALL [None]
  - GAIT DISTURBANCE [None]
  - INFARCTION [None]
  - INTUBATION [None]
  - LOSS OF CONTROL OF LEGS [None]
  - MYOCARDIAL ISCHAEMIA [None]
  - RESUSCITATION [None]
  - SUPRAVENTRICULAR TACHYCARDIA [None]
